FAERS Safety Report 7716206-X (Version None)
Quarter: 2011Q3

REPORT INFORMATION
  Report Type: 
  Country: None (occurrence: None)
  Receive Date: 20110829
  Receipt Date: 20110813
  Transmission Date: 20111222
  Serious: Yes (Other)
  Sender: FDA-Public Use
  Company Number: PHHY2011PL73996

PATIENT
  Age: 35 Year
  Sex: Female

DRUGS (3)
  1. CEFUROXIME [Concomitant]
     Indication: ASYMPTOMATIC BACTERIURIA
     Dosage: 750 MG, EVERY 8 H
     Route: 030
  2. CALCITONIN SALMON [Suspect]
     Dosage: 4 MG/KG ,EVERY 8 HOUR 12 DOSES
     Route: 030
  3. SODIUM CHLORIDE [Concomitant]
     Dosage: UNK UKN, UNK
     Route: 042

REACTIONS (5)
  - BLOOD CALCIUM INCREASED [None]
  - PARATHYROID TUMOUR BENIGN [None]
  - THYROID NEOPLASM [None]
  - MATERNAL EXPOSURE DURING PREGNANCY [None]
  - THERAPEUTIC RESPONSE DECREASED [None]
